FAERS Safety Report 4750924-0 (Version None)
Quarter: 2005Q3

REPORT INFORMATION
  Report Type: 
  Country: None (occurrence: None)
  Receive Date: 20050818
  Receipt Date: 20050816
  Transmission Date: 20060218
  Serious: Yes (Hospitalization)
  Sender: FDA-Public Use
  Company Number: A001-412-3752

PATIENT
  Age: 61 Year
  Sex: Female
  Weight: 54 kg

DRUGS (6)
  1. DONEPEZIL HCL [Suspect]
     Indication: COGNITIVE DISORDER
     Dosage: 5 MG, 1 IN 1 D, ORAL : 10 MG, 1 IN 1 D, ORAL
     Route: 048
     Dates: start: 20041227, end: 20050127
  2. DONEPEZIL HCL [Suspect]
     Indication: COGNITIVE DISORDER
     Dosage: 5 MG, 1 IN 1 D, ORAL : 10 MG, 1 IN 1 D, ORAL
     Route: 048
     Dates: start: 20050128, end: 20050405
  3. SYNTHROID [Concomitant]
  4. MULTIVITAMIN [Concomitant]
  5. CALCIUM GLUCONATE [Concomitant]
  6. NABUMETONE [Concomitant]

REACTIONS (3)
  - LOSS OF CONSCIOUSNESS [None]
  - SINUS ARREST [None]
  - SYNCOPE [None]
